FAERS Safety Report 22063772 (Version 1)
Quarter: 2023Q1

REPORT INFORMATION
  Report Type: Spontaneous
  Country: NL (occurrence: NL)
  Receive Date: 20230306
  Receipt Date: 20230306
  Transmission Date: 20230417
  Serious: Yes (Other)
  Sender: FDA-Public Use
  Company Number: NL-LRB-00866994

PATIENT
  Sex: Male
  Weight: 108 kg

DRUGS (4)
  1. AMOXICILLIN [Suspect]
     Active Substance: AMOXICILLIN
     Indication: Pneumonia
     Dosage: 500 MILLIGRAM, 3 TIMES A DAY (3X1 CAPSULE)
     Route: 065
     Dates: start: 20221212
  2. ACETAMINOPHEN [Concomitant]
     Active Substance: ACETAMINOPHEN
     Indication: Product used for unknown indication
     Dosage: 500 MILLIGRAM (TABLET)
     Route: 065
  3. CODEINE [Concomitant]
     Active Substance: CODEINE
     Indication: Product used for unknown indication
     Dosage: 10 MILLIGRAM (TABLET)
     Route: 065
  4. FLUIMUCIL [Concomitant]
     Active Substance: ACETYLCYSTEINE
     Indication: Product used for unknown indication
     Dosage: 40 MILLIGRAM PER MILLILITRE (DRANK)
     Route: 065

REACTIONS (1)
  - Drug-induced liver injury [Recovering/Resolving]
